FAERS Safety Report 4309426-8 (Version None)
Quarter: 2004Q1

REPORT INFORMATION
  Report Type: 
  Country: None (occurrence: None)
  Receive Date: 20040302
  Receipt Date: 20031223
  Transmission Date: 20041129
  Serious: Yes (Hospitalization)
  Sender: FDA-Public Use
  Company Number: PHBS2003US14598

PATIENT
  Age: 82 Year
  Sex: Male

DRUGS (12)
  1. NITROGLYCERIN [Suspect]
     Route: 061
  2. PROTONIX [Suspect]
     Dosage: 40 MG/DAY
     Route: 042
     Dates: start: 20031202
  3. FUROSEMIDE [Suspect]
     Dates: start: 20031202
  4. HEPARIN [Suspect]
     Dates: start: 20031202
  5. LISINOPRIL [Suspect]
     Dates: start: 20031202
  6. LOVENOX [Suspect]
     Dates: start: 20031202
  7. METFORMIN [Suspect]
  8. POTASSIUM [Suspect]
     Dates: start: 20031202
  9. PROPOFOL [Suspect]
     Dates: start: 20031202
  10. TYLENOL (CAPLET) [Suspect]
     Dates: start: 20031202
  11. ZITHROMAX [Suspect]
     Dates: start: 20031202
  12. ACETYLSALICYLIC ACID [Suspect]

REACTIONS (6)
  - BLOOD CREATINE PHOSPHOKINASE INCREASED [None]
  - CONDITION AGGRAVATED [None]
  - DYSPNOEA [None]
  - INFECTION [None]
  - MYOCARDIAL INFARCTION [None]
  - RHABDOMYOLYSIS [None]
